FAERS Safety Report 25287831 (Version 1)
Quarter: 2025Q2

REPORT INFORMATION
  Report Type: Spontaneous
  Country: US (occurrence: None)
  Receive Date: 20250509
  Receipt Date: 20250509
  Transmission Date: 20250716
  Serious: Yes (Death)
  Sender: FDA-CTU
  Company Number: None

PATIENT
  Sex: Male

DRUGS (1)
  1. IBRANCE [Suspect]
     Active Substance: PALBOCICLIB
     Indication: Head and neck cancer
     Dosage: 125 MG DAILY ORAL
     Route: 048
     Dates: start: 20250127

REACTIONS (1)
  - Neoplasm malignant [None]
